FAERS Safety Report 9181979 (Version 2)
Quarter: 2013Q4

REPORT INFORMATION
  Report Type: Spontaneous
  Country: US (occurrence: US)
  Receive Date: 20121030
  Receipt Date: 20131128
  Transmission Date: 20140711
  Serious: No
  Sender: FDA-Public Use
  Company Number: US-009507513-1210USA013174

PATIENT
  Sex: 0

DRUGS (1)
  1. DULERA [Suspect]
     Indication: CHRONIC OBSTRUCTIVE PULMONARY DISEASE
     Dosage: 200 MCG / 5 MCG, UNK
     Route: 055
     Dates: start: 2012

REACTIONS (2)
  - Medication error [Unknown]
  - Product quality issue [Unknown]
